FAERS Safety Report 4278717-1 (Version None)
Quarter: 2004Q1

REPORT INFORMATION
  Report Type: 
  Country: None (occurrence: None)
  Receive Date: 20040122
  Receipt Date: 20040115
  Transmission Date: 20041129
  Serious: Yes (Hospitalization)
  Sender: FDA-Public Use
  Company Number: TPA2003A01723

PATIENT
  Age: 76 Year
  Sex: Female
  Weight: 59.4212 kg

DRUGS (13)
  1. ACTOS [Suspect]
     Indication: DIABETES MELLITUS NON-INSULIN-DEPENDENT
     Dosage: SEE IMAGE
     Route: 048
     Dates: start: 20031001, end: 20031016
  2. ACTOS [Suspect]
     Indication: DIABETES MELLITUS NON-INSULIN-DEPENDENT
     Dosage: SEE IMAGE
     Route: 048
     Dates: start: 20031016, end: 20031115
  3. GLUCOPHAGE XR (METFORMIN HYDROCHLORIDE) [Concomitant]
  4. ZOCOR [Concomitant]
  5. TIMOPTIC EYE DROPS (TIMOLOL MALEATE) [Concomitant]
  6. LORAZEPAM [Concomitant]
  7. MULTIPLE VITAMINS (MULTIPLE VITAMINS) [Concomitant]
  8. CALCIUM (CALCIUM) [Concomitant]
  9. OMEGA-3 FISH OIL (OMEGA-3 TRIGLYCERIDES) [Concomitant]
  10. FOLIC ACID [Concomitant]
  11. VITAMIN C (ASCORBIC ACID) [Concomitant]
  12. VITAMIN E [Concomitant]
  13. XANAX [Concomitant]

REACTIONS (13)
  - ABDOMINAL DISTENSION [None]
  - ANOREXIA [None]
  - BILE DUCT OBSTRUCTION [None]
  - DYSPEPSIA [None]
  - EPIGASTRIC DISCOMFORT [None]
  - FEELING ABNORMAL [None]
  - FREQUENT BOWEL MOVEMENTS [None]
  - GASTRIC DISORDER [None]
  - HEPATITIS TOXIC [None]
  - MALAISE [None]
  - PANCREATIC CARCINOMA [None]
  - PANCREATIC DUCT OBSTRUCTION [None]
  - RASH GENERALISED [None]
